FAERS Safety Report 7815219-7 (Version None)
Quarter: 2011Q4

REPORT INFORMATION
  Report Type: 
  Country: None (occurrence: None)
  Receive Date: 20111014
  Receipt Date: 20111011
  Transmission Date: 20120403
  Serious: Yes (Life-Threatening, Hospitalization)
  Sender: FDA-Public Use
  Company Number: US-JNJFOC-20111005391

PATIENT
  Age: 15 Year
  Sex: Male

DRUGS (4)
  1. ANTIBIOTIC [Suspect]
     Indication: PRODUCT USED FOR UNKNOWN INDICATION
     Dosage: 5-6 ANTIBIOTIC, PREPARATION 300 MG
     Route: 065
  2. METHADONE HCL [Suspect]
     Indication: PRODUCT USED FOR UNKNOWN INDICATION
     Route: 065
  3. ULTRAM [Suspect]
     Indication: PRODUCT USED FOR UNKNOWN INDICATION
     Dosage: 50 MG
     Route: 065
  4. CEFDINIR [Suspect]
     Indication: PRODUCT USED FOR UNKNOWN INDICATION
     Route: 065

REACTIONS (15)
  - HYPOTENSION [None]
  - BLOOD PH DECREASED [None]
  - SOMNOLENCE [None]
  - MULTIPLE DRUG OVERDOSE [None]
  - OXYGEN SATURATION ABNORMAL [None]
  - LETHARGY [None]
  - TACHYCARDIA [None]
  - BLOOD POTASSIUM DECREASED [None]
  - TOXICITY TO VARIOUS AGENTS [None]
  - DEPRESSED LEVEL OF CONSCIOUSNESS [None]
  - RESPIRATORY DEPRESSION [None]
  - CONVULSION [None]
  - ABDOMINAL DISCOMFORT [None]
  - ABNORMAL BEHAVIOUR [None]
  - BRADYCARDIA [None]
